FAERS Safety Report 19157504 (Version 2)
Quarter: 2021Q2

REPORT INFORMATION
  Report Type: Spontaneous
  Country: CA (occurrence: CA)
  Receive Date: 20210420
  Receipt Date: 20210608
  Transmission Date: 20210717
  Serious: Yes (Other)
  Sender: FDA-Public Use
  Company Number: CA-BEH-2021130556

PATIENT
  Age: 10 Week
  Sex: Male
  Weight: 7.5 kg

DRUGS (9)
  1. PRIVIGEN [Suspect]
     Active Substance: HUMAN IMMUNOGLOBULIN G
     Indication: HEPATOSPLENOMEGALY
     Dosage: 1.99 MILLILITER, 1/4 FRACTION
     Route: 042
     Dates: start: 20201218, end: 20201218
  2. CETIRIZINE [Concomitant]
     Active Substance: CETIRIZINE HYDROCHLORIDE
     Indication: PREMEDICATION
     Dosage: 2 MILLIGRAM
     Route: 048
     Dates: start: 20201218
  3. PRIVIGEN [Suspect]
     Active Substance: HUMAN IMMUNOGLOBULIN G
     Indication: FEBRILE INFECTION
     Dosage: 10 MILLILITER, 1/4 FRACTION
     Route: 042
     Dates: start: 20201217, end: 20201218
  4. PRIVIGEN [Suspect]
     Active Substance: HUMAN IMMUNOGLOBULIN G
     Indication: PANCYTOPENIA
     Dosage: 9 MILLILITER, 1/4 FRACTION
     Route: 042
     Dates: start: 20201218, end: 20201218
  5. PRIVIGEN [Suspect]
     Active Substance: HUMAN IMMUNOGLOBULIN G
     Indication: URINARY TRACT INFECTION
     Dosage: 25 MILLILITER, 4/4 FRACTION
     Route: 042
     Dates: start: 20201217, end: 20201217
  6. PRIVIGEN [Suspect]
     Active Substance: HUMAN IMMUNOGLOBULIN G
     Indication: TRANSAMINASES INCREASED
  7. PRIVIGEN [Suspect]
     Active Substance: HUMAN IMMUNOGLOBULIN G
     Indication: HAEMOPHAGOCYTIC LYMPHOHISTIOCYTOSIS
  8. TYLENOL [Concomitant]
     Active Substance: ACETAMINOPHEN
     Indication: PREMEDICATION
     Dosage: 100 MILLIGRAM
     Route: 048
     Dates: start: 20201217
  9. TYLENOL [Concomitant]
     Active Substance: ACETAMINOPHEN
     Dosage: 155 MILLIGRAM [ALSO REPORTED: 115 MG]
     Route: 048
     Dates: start: 20201218

REACTIONS (8)
  - Hyperhidrosis [Unknown]
  - Cold sweat [Unknown]
  - Off label use [Unknown]
  - Infant irritability [Unknown]
  - Hypothermia [Recovered/Resolved]
  - Hypothermia [Recovered/Resolved]
  - Hyperhidrosis [Unknown]
  - No adverse event [Unknown]

NARRATIVE: CASE EVENT DATE: 20201217
